FAERS Safety Report 22520660 (Version 1)
Quarter: 2023Q2

REPORT INFORMATION
  Report Type: Report from Study
  Country: CA (occurrence: CA)
  Receive Date: 20230605
  Receipt Date: 20230605
  Transmission Date: 20230722
  Serious: Yes (Hospitalization)
  Sender: FDA-Public Use
  Company Number: CA-TEVA-2023-CA-2893561

PATIENT
  Sex: Male

DRUGS (2)
  1. OCTREOTIDE [Suspect]
     Active Substance: OCTREOTIDE
     Indication: Carcinoid tumour
     Route: 030
     Dates: start: 20220524, end: 20230425
  2. Sando Lar [Concomitant]
     Indication: Product used for unknown indication

REACTIONS (4)
  - Peritonsillar abscess [Unknown]
  - Tonsillar hypertrophy [Unknown]
  - Oropharyngeal pain [Unknown]
  - Dyspnoea [Unknown]
